FAERS Safety Report 6183804-7 (Version None)
Quarter: 2009Q2

REPORT INFORMATION
  Report Type: 
  Country: None (occurrence: None)
  Receive Date: 20090506
  Receipt Date: 20090506
  Transmission Date: 20091009
  Serious: No
  Sender: FDA-Public Use
  Company Number: None

PATIENT
  Age: 26 Year
  Sex: Female
  Weight: 102.9665 kg

DRUGS (6)
  1. LAMOTRIGINE [Suspect]
     Indication: AFFECTIVE DISORDER
     Dosage: 150MG BID ORAL 2-3 WEEKS
     Route: 048
     Dates: start: 20081103, end: 20081215
  2. LAMOTRIGINE [Suspect]
     Indication: SCHIZOAFFECTIVE DISORDER
     Dosage: 150MG BID ORAL 2-3 WEEKS
     Route: 048
     Dates: start: 20081103, end: 20081215
  3. CYMBATAL [Concomitant]
  4. ADDERALL XR 20 [Concomitant]
  5. SEROQUEL [Concomitant]
  6. HALDOL [Concomitant]

REACTIONS (5)
  - DIZZINESS [None]
  - FALL [None]
  - GAIT DISTURBANCE [None]
  - HEAD INJURY [None]
  - VISION BLURRED [None]
